FAERS Safety Report 7629825-6 (Version None)
Quarter: 2011Q3

REPORT INFORMATION
  Report Type: 
  Country: None (occurrence: None)
  Receive Date: 20110722
  Receipt Date: 20110622
  Transmission Date: 20111222
  Serious: Yes (Other)
  Sender: FDA-Public Use
  Company Number: US-BAYER-2011-053500

PATIENT
  Age: 65 Year
  Sex: Male

DRUGS (5)
  1. ACETYLSALICYLIC ACID SRT [Suspect]
     Indication: ANTIPLATELET THERAPY
  2. CLOPIDOGREL [Suspect]
     Indication: ANTIPLATELET THERAPY
  3. HMG COA REDUCTASE INHIBITORS [Concomitant]
     Indication: HYPERLIPIDAEMIA
  4. NAPROXEN [Concomitant]
     Indication: MUSCLE STRAIN
  5. ANGIOTENSIN II ANTAGONISTS [Concomitant]
     Indication: HYPERTENSION

REACTIONS (3)
  - DIZZINESS [None]
  - GASTRIC ULCER HAEMORRHAGE [None]
  - MELAENA [None]
